FAERS Safety Report 6036480-8 (Version None)
Quarter: 2009Q1

REPORT INFORMATION
  Report Type: 
  Country: None (occurrence: None)
  Receive Date: 20090112
  Receipt Date: 20081218
  Transmission Date: 20090719
  Serious: Yes (Hospitalization, Other)
  Sender: FDA-Public Use
  Company Number: 000022

PATIENT
  Sex: Female
  Weight: 69.5 kg

DRUGS (2)
  1. NEUPRO [Suspect]
     Indication: PARKINSON'S DISEASE
     Dosage: 12 MG QD, TRANSDERMAL, 10 MG QD; TRANSDERMAL
     Route: 062
     Dates: start: 20050322, end: 20071017
  2. NEUPRO [Suspect]
     Indication: PARKINSON'S DISEASE
     Dosage: 12 MG QD, TRANSDERMAL, 10 MG QD; TRANSDERMAL
     Route: 062
     Dates: start: 20071018

REACTIONS (2)
  - DELIRIUM [None]
  - URINARY RETENTION [None]
